FAERS Safety Report 16503870 (Version 2)
Quarter: 2019Q3

REPORT INFORMATION
  Report Type: Spontaneous
  Country: US (occurrence: US)
  Receive Date: 20190701
  Receipt Date: 20190723
  Transmission Date: 20191004
  Serious: No
  Sender: FDA-Public Use
  Company Number: US-PFIZER INC-2019269943

PATIENT
  Age: 60 Year
  Sex: Female
  Weight: 73.92 kg

DRUGS (1)
  1. IBRANCE [Suspect]
     Active Substance: PALBOCICLIB
     Indication: BREAST CANCER
     Dosage: 125 MG, CYCLIC (1 CAPSULE DAILY 1-21 DAYS)
     Route: 048
     Dates: start: 201902

REACTIONS (3)
  - Pain [Unknown]
  - Hypoaesthesia [Unknown]
  - Decreased appetite [Unknown]

NARRATIVE: CASE EVENT DATE: 201902
